FAERS Safety Report 20711925 (Version 1)
Quarter: 2022Q2

REPORT INFORMATION
  Report Type: Report from Study
  Country: US (occurrence: US)
  Receive Date: 20220414
  Receipt Date: 20220414
  Transmission Date: 20220721
  Serious: No
  Sender: FDA-Public Use
  Company Number: US-KYOWAKIRIN-2022BKK005170

PATIENT

DRUGS (2)
  1. CRYSVITA [Suspect]
     Active Substance: BUROSUMAB-TWZA
     Indication: Hereditary hypophosphataemic rickets
     Dosage: VIALS 30MG/ML AND 10MG/ML COMBINED TO ACHIEVE DOSE OF 70MG, EVERY 14 DAYS
     Route: 058
     Dates: start: 20190222
  2. CRYSVITA [Suspect]
     Active Substance: BUROSUMAB-TWZA
     Indication: Hereditary hypophosphataemic rickets
     Dosage: VIALS 30MG/ML AND 10MG/ML COMBINED TO ACHIEVE DOSE OF 70MG, EVERY 14 DAYS
     Route: 058
     Dates: start: 20190222

REACTIONS (5)
  - Insomnia [Unknown]
  - Arthralgia [Unknown]
  - Back pain [Unknown]
  - Blood phosphorus decreased [Unknown]
  - Product dose omission issue [Unknown]

NARRATIVE: CASE EVENT DATE: 20220207
